FAERS Safety Report 23412361 (Version 1)
Quarter: 2024Q1

REPORT INFORMATION
  Report Type: Spontaneous
  Country: US (occurrence: US)
  Receive Date: 20240117
  Receipt Date: 20240117
  Transmission Date: 20240410
  Serious: No
  Sender: FDA-Public Use
  Company Number: US-NOVOPROD-1090532

PATIENT
  Sex: Female

DRUGS (1)
  1. OZEMPIC [Suspect]
     Active Substance: SEMAGLUTIDE
     Indication: Weight control
     Dosage: STARTED AT THE 0.25 MG AND TITRATED UP TO THE 2 MG
     Route: 058
     Dates: start: 202302

REACTIONS (2)
  - Micturition urgency [Unknown]
  - Off label use [Unknown]
